FAERS Safety Report 25084096 (Version 1)
Quarter: 2025Q1

REPORT INFORMATION
  Report Type: Spontaneous
  Country: IT (occurrence: IT)
  Receive Date: 20250317
  Receipt Date: 20250317
  Transmission Date: 20250409
  Serious: Yes (Other)
  Sender: AUROBINDO
  Company Number: IT-MINISAL02-1027947

PATIENT
  Age: 52 Year
  Sex: Female

DRUGS (2)
  1. CARBOPLATIN [Suspect]
     Active Substance: CARBOPLATIN
     Indication: Ovarian cancer stage IV
     Route: 042
     Dates: start: 20241219
  2. DOXORUBICIN HYDROCHLORIDE [Suspect]
     Active Substance: DOXORUBICIN HYDROCHLORIDE
     Indication: Ovarian cancer stage IV
     Route: 042
     Dates: start: 20241219

REACTIONS (1)
  - Infusion related hypersensitivity reaction [Recovered/Resolved]

NARRATIVE: CASE EVENT DATE: 20241219
